FAERS Safety Report 9470378 (Version 1)
Quarter: 2013Q3

REPORT INFORMATION
  Report Type: Spontaneous
  Country: US (occurrence: US)
  Receive Date: 20130822
  Receipt Date: 20130822
  Transmission Date: 20140515
  Serious: No
  Sender: FDA-Public Use
  Company Number: US-SANOFI-AVENTIS-2013SA015891

PATIENT
  Age: 64 Year
  Sex: Male
  Weight: 108.8 kg

DRUGS (13)
  1. MULTAQ [Suspect]
     Indication: ATRIAL FIBRILLATION
     Route: 048
     Dates: start: 201210
  2. LANTUS [Concomitant]
     Indication: DIABETES MELLITUS
     Dosage: AM AND HS DOSE:40 UNIT(S)
     Route: 058
  3. DILTIAZEM [Concomitant]
  4. WARFARIN [Concomitant]
  5. ASPIRIN [Concomitant]
  6. ALLOPURINOL [Concomitant]
  7. ADVICOR [Concomitant]
  8. ADVAIR [Concomitant]
  9. LISINOPRIL [Concomitant]
  10. PANTOPRAZOLE [Concomitant]
  11. ATENOLOL [Concomitant]
  12. FISH OIL [Concomitant]
  13. METAMUCIL [Concomitant]

REACTIONS (1)
  - Sleep disorder [Unknown]
